FAERS Safety Report 17040363 (Version 1)
Quarter: 2019Q4

REPORT INFORMATION
  Report Type: Spontaneous
  Country: US (occurrence: US)
  Receive Date: 20191117
  Receipt Date: 20191117
  Transmission Date: 20200122
  Serious: No
  Sender: FDA-Public Use
  Company Number: US-TORRENT-00008580

PATIENT
  Sex: Female
  Weight: 85 kg

DRUGS (2)
  1. LOSARTAN AND HYDROCHLOROTHIAZIDE [Suspect]
     Active Substance: HYDROCHLOROTHIAZIDE\LOSARTAN POTASSIUM
     Indication: HYPERTENSION
     Dosage: IN MORNING
     Dates: end: 201904
  2. LOSARTAN. [Suspect]
     Active Substance: LOSARTAN
     Indication: HYPERTENSION
     Dosage: IN MORNING
     Dates: end: 201904

REACTIONS (3)
  - Nausea [Unknown]
  - Malaise [Unknown]
  - Lethargy [Unknown]

NARRATIVE: CASE EVENT DATE: 2017
